FAERS Safety Report 6751720-5 (Version None)
Quarter: 2010Q2

REPORT INFORMATION
  Report Type: 
  Country: None (occurrence: None)
  Receive Date: 20100528
  Receipt Date: 20100513
  Transmission Date: 20101027
  Serious: Yes (Life-Threatening)
  Sender: FDA-Public Use
  Company Number: 2010001618

PATIENT
  Age: 52 Year
  Sex: Female

DRUGS (12)
  1. ERLOTINIB (ERLOTINIB) (TABLET) (ERLOTINIB) [Suspect]
     Indication: NON-SMALL CELL LUNG CANCER
     Dosage: (QD), ORAL
     Route: 048
     Dates: start: 20100412, end: 20100419
  2. DEXAMETHASONE [Concomitant]
  3. RANITIDINE [Concomitant]
  4. NICOTINE [Concomitant]
  5. GABAPENTIN [Concomitant]
  6. VENLAFAXINE HCL [Concomitant]
  7. FENTANYL-100 [Concomitant]
  8. ESTRADIOL/LEVONORGESTREL [Concomitant]
  9. LORATADINE [Concomitant]
  10. CORTICOSTEROIDS (CORTICOSTEROIDS) [Concomitant]
  11. SALBUTAMOL (SALBUTAMOL) [Concomitant]
  12. TRAMADOL HCL [Concomitant]

REACTIONS (4)
  - BRAIN OEDEMA [None]
  - DYSPNOEA [None]
  - FALL [None]
  - METABOLIC ACIDOSIS [None]
